FAERS Safety Report 21666227 (Version 2)
Quarter: 2024Q2

REPORT INFORMATION
  Report Type: Report from Study
  Country: US (occurrence: US)
  Receive Date: 20221201
  Receipt Date: 20240617
  Transmission Date: 20240716
  Serious: Yes (Hospitalization)
  Sender: FDA-Public Use
  Company Number: US-ABBVIE-4219053

PATIENT
  Sex: Male

DRUGS (2)
  1. HUMIRA [Suspect]
     Active Substance: ADALIMUMAB
     Indication: Colitis ulcerative
     Dosage: 80MG INJECT 2 PENS  (160MG) IN EITHER ONE DAY OR SPLIT OVER TWO CONSECUTIVE DAYS
     Route: 058
  2. HUMIRA [Suspect]
     Active Substance: ADALIMUMAB
     Dosage: INJECT 1 PEN (80MG) ON DAY 15 AS DIRECTED
     Route: 058

REACTIONS (1)
  - Osteomyelitis [Unknown]
